FAERS Safety Report 22084511 (Version 1)
Quarter: 2023Q1

REPORT INFORMATION
  Report Type: Spontaneous
  Country: US (occurrence: None)
  Receive Date: 20230309
  Receipt Date: 20230309
  Transmission Date: 20230417
  Serious: Yes (Hospitalization)
  Sender: FDA-Public Use
  Company Number: None

PATIENT
  Age: 87 Year
  Sex: Female
  Weight: 55.2 kg

DRUGS (5)
  1. VENOFER [Suspect]
     Active Substance: IRON SUCROSE
     Indication: Anaemia
     Dates: start: 20230220, end: 20230220
  2. LORAZEPAM [Concomitant]
     Active Substance: LORAZEPAM
  3. ONDANSETRON [Concomitant]
     Active Substance: ONDANSETRON
  4. FLUOROURACIL [Concomitant]
     Active Substance: FLUOROURACIL
  5. luecovorin [Concomitant]

REACTIONS (5)
  - Infusion related reaction [None]
  - Diarrhoea [None]
  - Pallor [None]
  - Hyperhidrosis [None]
  - Hypotension [None]

NARRATIVE: CASE EVENT DATE: 20230220
